FAERS Safety Report 6265082-3 (Version None)
Quarter: 2009Q3

REPORT INFORMATION
  Report Type: 
  Country: None (occurrence: None)
  Receive Date: 20090708
  Receipt Date: 20090708
  Transmission Date: 20100115
  Serious: Yes (Hospitalization)
  Sender: FDA-Public Use
  Company Number: None

PATIENT
  Age: 62 Year
  Sex: Female
  Weight: 56.6996 kg

DRUGS (1)
  1. TOPIRAMATE [Suspect]
     Indication: HEADACHE
     Dosage: 25 M 1 BED TIME FOR WEEK
     Dates: start: 20090618

REACTIONS (3)
  - CHEST PAIN [None]
  - LOCAL SWELLING [None]
  - PAIN [None]
